FAERS Safety Report 10011980 (Version 1)
Quarter: 2014Q1

REPORT INFORMATION
  Report Type: Spontaneous
  Country: US (occurrence: US)
  Receive Date: 20140314
  Receipt Date: 20140314
  Transmission Date: 20141002
  Serious: Yes (Other)
  Sender: FDA-Public Use
  Company Number: US-ASTRAZENECA-2014SE16469

PATIENT
  Age: 72 Year
  Sex: Female
  Weight: 44.9 kg

DRUGS (5)
  1. TOPROL XL [Suspect]
     Indication: MYOCARDIAL INFARCTION
     Route: 048
  2. TOPROL XL [Suspect]
     Indication: STENT PLACEMENT
     Route: 048
  3. BABY ASPIRIN [Concomitant]
     Dosage: DAILY
  4. THYROID MEDICATION [Concomitant]
  5. IBUPROFEN [Concomitant]
     Dosage: PRN

REACTIONS (9)
  - VIIth nerve paralysis [Unknown]
  - Cardiac disorder [Unknown]
  - Chronic obstructive pulmonary disease [Unknown]
  - Bronchiectasis [Unknown]
  - Thyroid disorder [Unknown]
  - Arthritis [Unknown]
  - Inflammation [Unknown]
  - Skin discolouration [Unknown]
  - Circumstance or information capable of leading to medication error [Unknown]
